FAERS Safety Report 7595987-2 (Version None)
Quarter: 2011Q3

REPORT INFORMATION
  Report Type: 
  Country: None (occurrence: None)
  Receive Date: 20110707
  Receipt Date: 20110627
  Transmission Date: 20111222
  Serious: Yes (Death)
  Sender: FDA-Public Use
  Company Number: US-JNJFOC-20110612993

PATIENT
  Sex: Male

DRUGS (2)
  1. TYLENOL (CAPLET) [Suspect]
     Indication: BACK PAIN
     Route: 048
  2. TYLENOL (CAPLET) [Suspect]
     Route: 048

REACTIONS (2)
  - HEPATIC FAILURE [None]
  - OVERDOSE [None]
